FAERS Safety Report 6534258-X (Version None)
Quarter: 2010Q1

REPORT INFORMATION
  Report Type: 
  Country: None (occurrence: None)
  Receive Date: 20100112
  Receipt Date: 20100102
  Transmission Date: 20100710
  Serious: Yes (Hospitalization)
  Sender: FDA-Public Use
  Company Number: US-JNJFOC-20100102254

PATIENT
  Sex: Male
  Weight: 99.79 kg

DRUGS (2)
  1. TYLENOL (CAPLET) [Suspect]
     Route: 048
  2. TYLENOL (CAPLET) [Suspect]
     Indication: ARTHRITIS
     Dosage: 1300-1950MG, DAILY
     Route: 048

REACTIONS (2)
  - PRODUCT QUALITY ISSUE [None]
  - VOMITING [None]
